FAERS Safety Report 10158154 (Version 1)
Quarter: 2014Q2

REPORT INFORMATION
  Report Type: Spontaneous
  Country: MX (occurrence: MX)
  Receive Date: 20140507
  Receipt Date: 20140507
  Transmission Date: 20141212
  Serious: Yes (Hospitalization, Other)
  Sender: FDA-Public Use
  Company Number: PHHY2014MX054874

PATIENT
  Age: 81 Year
  Sex: Female

DRUGS (2)
  1. EXELON PATCH [Suspect]
     Indication: DEMENTIA ALZHEIMER^S TYPE
     Dosage: 4.6 MG, QD (5CM2/4.6MG)
     Route: 062
     Dates: start: 20140126, end: 20140208
  2. EXELON PATCH [Suspect]
     Dosage: 4.6 MG, QD (5CM2/4.6MG)
     Route: 062
     Dates: start: 20140502

REACTIONS (4)
  - Herpes zoster [Recovered/Resolved]
  - Gastrointestinal ulcer [Recovered/Resolved]
  - Pain [Recovered/Resolved]
  - Malaise [Recovered/Resolved]
